FAERS Safety Report 10885971 (Version 1)
Quarter: 2015Q1

REPORT INFORMATION
  Report Type: Spontaneous
  Country: US (occurrence: None)
  Receive Date: 20150227
  Receipt Date: 20150227
  Transmission Date: 20150721
  Serious: Yes (Hospitalization)
  Sender: FDA-Public Use
  Company Number: None

PATIENT
  Age: 55 Year
  Sex: Female

DRUGS (19)
  1. AMOXICILLIN. [Concomitant]
     Active Substance: AMOXICILLIN
  2. LASIX [Concomitant]
     Active Substance: FUROSEMIDE
  3. PAROXETINE [Concomitant]
     Active Substance: PAROXETINE\PAROXETINE HYDROCHLORIDE
  4. ZOFRAN [Concomitant]
     Active Substance: ONDANSETRON HYDROCHLORIDE
  5. TRAZOD [Concomitant]
  6. RITALIN LA [Concomitant]
     Active Substance: METHYLPHENIDATE HYDROCHLORIDE
  7. BACLOFEN. [Concomitant]
     Active Substance: BACLOFEN
  8. AMPYRA [Suspect]
     Active Substance: DALFAMPRIDINE
     Indication: MULTIPLE SCLEROSIS
     Route: 048
     Dates: start: 201007
  9. TAMIFLU [Concomitant]
     Active Substance: OSELTAMIVIR PHOSPHATE
  10. MODAFINIL. [Concomitant]
     Active Substance: MODAFINIL
  11. OXYBUTYNIN [Concomitant]
     Active Substance: OXYBUTYNIN
  12. CLONIDINE. [Concomitant]
     Active Substance: CLONIDINE
  13. ONE [Concomitant]
  14. COPAXONE [Concomitant]
     Active Substance: GLATIRAMER ACETATE
  15. TOPIRAMATE. [Concomitant]
     Active Substance: TOPIRAMATE
  16. FLECAINIDE [Concomitant]
     Active Substance: FLECAINIDE
  17. WARFARIN [Concomitant]
     Active Substance: WARFARIN
  18. RANITIDINE [Concomitant]
     Active Substance: RANITIDINE\RANITIDINE HYDROCHLORIDE
  19. NUVIGIL [Concomitant]
     Active Substance: ARMODAFINIL

REACTIONS (2)
  - Nausea [None]
  - Vomiting [None]

NARRATIVE: CASE EVENT DATE: 20130219
